FAERS Safety Report 23779221 (Version 1)
Quarter: 2024Q2

REPORT INFORMATION
  Report Type: Spontaneous
  Country: DE (occurrence: DE)
  Receive Date: 20240424
  Receipt Date: 20240424
  Transmission Date: 20240716
  Serious: Yes (Other)
  Sender: FDA-Public Use
  Company Number: DE-JNJFOC-20240460528

PATIENT
  Age: 92 Year
  Sex: Male

DRUGS (5)
  1. ERLEADA [Suspect]
     Active Substance: APALUTAMIDE
     Indication: Prostate cancer
     Route: 048
     Dates: start: 202403
  2. BISOPROLOL [Concomitant]
     Active Substance: BISOPROLOL\BISOPROLOL FUMARATE
  3. METAMIZOLE [Concomitant]
     Active Substance: METAMIZOLE
  4. CANDESARTAN [Concomitant]
     Active Substance: CANDESARTAN
  5. HCP [Concomitant]

REACTIONS (2)
  - Joint swelling [Unknown]
  - Rash [Unknown]
